FAERS Safety Report 14328333 (Version 3)
Quarter: 2018Q1

REPORT INFORMATION
  Report Type: Other
  Country: GB (occurrence: GB)
  Receive Date: 20171227
  Receipt Date: 20180226
  Transmission Date: 20180509
  Serious: Yes (Other)
  Sender: FDA-Public Use
  Company Number: GB-ASPEN-GLO2017GB008775

PATIENT
  Age: 52 Year
  Sex: Male
  Weight: 94.1 kg

DRUGS (5)
  1. DEXAMETHASONE. [Suspect]
     Active Substance: DEXAMETHASONE
     Indication: PLASMA CELL MYELOMA
     Dosage: 20 MG
     Route: 048
     Dates: start: 20171103
  2. THALIDOMIDE [Suspect]
     Active Substance: THALIDOMIDE
     Indication: PLASMA CELL MYELOMA
     Dosage: 200 MG, QD
     Route: 048
     Dates: start: 20151103
  3. VELCADE [Suspect]
     Active Substance: BORTEZOMIB
     Indication: PLASMA CELL MYELOMA
     Dosage: 5.5 MG
     Route: 058
     Dates: start: 20171103
  4. ACICLOVIR [Concomitant]
     Active Substance: ACYCLOVIR
     Indication: PROPHYLAXIS
     Dosage: 800 MG, QD
     Route: 065
     Dates: start: 20171103
  5. VELCADE [Suspect]
     Active Substance: BORTEZOMIB
     Dosage: 5.5 MG
     Route: 058

REACTIONS (3)
  - Papilloedema [Not Recovered/Not Resolved]
  - Uveitis [Not Recovered/Not Resolved]
  - Optic neuropathy [Not Recovered/Not Resolved]
